FAERS Safety Report 19597735 (Version 1)
Quarter: 2021Q3

REPORT INFORMATION
  Report Type: Spontaneous
  Country: US (occurrence: US)
  Receive Date: 20210722
  Receipt Date: 20210722
  Transmission Date: 20211014
  Serious: Yes (Hospitalization)
  Sender: FDA-Public Use
  Company Number: None

PATIENT
  Age: 77 Year
  Sex: Male
  Weight: 113.2 kg

DRUGS (2)
  1. CAPECITABINE. [Suspect]
     Active Substance: CAPECITABINE
     Indication: CHOLANGIOCARCINOMA
     Route: 048
  2. XELODA [Concomitant]
     Active Substance: CAPECITABINE
     Dates: start: 20210308, end: 20210528

REACTIONS (2)
  - Skin exfoliation [None]
  - Mucosal inflammation [None]

NARRATIVE: CASE EVENT DATE: 20210628
